FAERS Safety Report 5739004-5 (Version None)
Quarter: 2008Q2

REPORT INFORMATION
  Report Type: 
  Country: None (occurrence: None)
  Receive Date: 20080515
  Receipt Date: 20080509
  Transmission Date: 20081010
  Serious: Yes (Hospitalization)
  Sender: FDA-Public Use
  Company Number: GB-PURDUE-GBR_2006_0002621

PATIENT
  Age: 54 Year
  Sex: Male
  Weight: 81 kg

DRUGS (9)
  1. ACETAMINOPHEN W/ CODEINE [Concomitant]
     Dosage: 2 DF, QID
     Route: 065
  2. LACTULOSE [Concomitant]
     Indication: CONSTIPATION
     Dosage: 15 MG, BID
     Route: 065
     Dates: start: 20061001
  3. LATANOPROST [Concomitant]
     Route: 065
  4. OMEPRAZOLE [Concomitant]
     Indication: DUODENAL ULCER
     Dosage: 10 MG, UNK
     Route: 065
  5. TIMOLOL MALEATE [Concomitant]
     Route: 065
  6. VENLAFAXINE HCL [Concomitant]
     Indication: DEPRESSION
     Dosage: 150 UNK, UNK
     Route: 065
     Dates: end: 20061001
  7. MORPHINE SULFATE [Suspect]
     Indication: PAIN
     Dosage: 60 MG, BID
     Route: 048
     Dates: start: 20060701
  8. NEURONTIN [Suspect]
     Indication: NEURALGIA
     Dosage: 2700 MG, DAILY
     Route: 048
     Dates: start: 20060701
  9. NEURONTIN [Suspect]
     Dosage: 900 MG, DAILY
     Route: 048
     Dates: start: 20060701

REACTIONS (2)
  - DEPRESSIVE SYMPTOM [None]
  - DRUG INTERACTION [None]
